FAERS Safety Report 5077288-X (Version None)
Quarter: 2006Q3

REPORT INFORMATION
  Report Type: 
  Country: None (occurrence: None)
  Receive Date: 20060810
  Receipt Date: 20060118
  Transmission Date: 20061208
  Serious: No
  Sender: FDA-Public Use
  Company Number: US-GLAXOSMITHKLINE-A0589871A

PATIENT
  Age: 44 Year
  Sex: Female

DRUGS (7)
  1. PAXIL [Suspect]
     Indication: MAJOR DEPRESSION
     Dosage: 10MG PER DAY
     Route: 048
     Dates: start: 20051101, end: 20060116
  2. TEGRETOL [Concomitant]
  3. DEPAKOTE [Concomitant]
  4. NATURAL PROGESTERONE [Concomitant]
  5. LEVOTHROID [Concomitant]
  6. VITAMINS [Concomitant]
  7. CALCIUM GLUCONATE [Concomitant]

REACTIONS (1)
  - PRURITUS [None]
